FAERS Safety Report 24193976 (Version 1)
Quarter: 2024Q3

REPORT INFORMATION
  Report Type: Spontaneous
  Country: JP (occurrence: JP)
  Receive Date: 20240809
  Receipt Date: 20240809
  Transmission Date: 20241016
  Serious: Yes (Other)
  Sender: ELI LILLY AND CO
  Company Number: JP-ELI_LILLY_AND_COMPANY-JP202408001944

PATIENT
  Age: 56 Year
  Sex: Female

DRUGS (2)
  1. VERZENIO [Suspect]
     Active Substance: ABEMACICLIB
     Indication: Breast cancer stage II
     Dosage: 300 MG, UNKNOWN
     Route: 048
  2. LETROZOLE [Concomitant]
     Active Substance: LETROZOLE
     Dosage: 1 MG

REACTIONS (2)
  - Hepatic function abnormal [Recovered/Resolved]
  - Autoimmune thyroiditis [Unknown]
